FAERS Safety Report 18837471 (Version 1)
Quarter: 2021Q1

REPORT INFORMATION
  Report Type: Spontaneous
  Country: IT (occurrence: IT)
  Receive Date: 20210203
  Receipt Date: 20210203
  Transmission Date: 20210419
  Serious: Yes (Other)
  Sender: FDA-Public Use
  Company Number: IT-BRISTOL-MYERS SQUIBB COMPANY-BMS-2021-008839

PATIENT
  Age: 71 Year
  Sex: Male

DRUGS (1)
  1. OPDIVO [Suspect]
     Active Substance: NIVOLUMAB
     Indication: METASTATIC MALIGNANT MELANOMA
     Dosage: 480 MILLIGRAM, QCYCLE
     Route: 042
     Dates: start: 20200803

REACTIONS (2)
  - Arthralgia [Not Recovered/Not Resolved]
  - Gravitational oedema [Not Recovered/Not Resolved]

NARRATIVE: CASE EVENT DATE: 20201221
